FAERS Safety Report 13066465 (Version 2)
Quarter: 2017Q2

REPORT INFORMATION
  Report Type: Spontaneous
  Country: JP (occurrence: JP)
  Receive Date: 20161227
  Receipt Date: 20170609
  Transmission Date: 20170830
  Serious: Yes (Hospitalization)
  Sender: FDA-Public Use
  Company Number: JP-REGENERON PHARMACEUTICALS, INC.-2016-25405

PATIENT

DRUGS (4)
  1. RANIBIZUMAB [Concomitant]
     Active Substance: RANIBIZUMAB
     Indication: POLYPOIDAL CHOROIDAL VASCULOPATHY
     Dosage: 11 INJECTIONS OF 0.5 MG
     Route: 031
     Dates: start: 201207, end: 201602
  2. VERTEPORFIN [Suspect]
     Active Substance: VERTEPORFIN
     Indication: PHOTODYNAMIC THERAPY
  3. EYLEA [Suspect]
     Active Substance: AFLIBERCEPT
     Indication: POLYPOIDAL CHOROIDAL VASCULOPATHY
     Dosage: 23 INJECTIONS OF 2 MG
     Route: 031
     Dates: start: 201207, end: 201602
  4. EYLEA [Suspect]
     Active Substance: AFLIBERCEPT
     Indication: AGE-RELATED MACULAR DEGENERATION
     Dosage: 24TH EYLEA INJECTION
     Route: 031
     Dates: start: 20160422, end: 20160422

REACTIONS (2)
  - Drug eruption [Recovering/Resolving]
  - Pharyngeal erythema [Recovered/Resolved]

NARRATIVE: CASE EVENT DATE: 20160422
